FAERS Safety Report 20524472 (Version 6)
Quarter: 2023Q2

REPORT INFORMATION
  Report Type: Spontaneous
  Country: US (occurrence: US)
  Receive Date: 20220228
  Receipt Date: 20230607
  Transmission Date: 20230722
  Serious: No
  Sender: FDA-Public Use
  Company Number: US-SA-SAC20220221000578

PATIENT
  Age: 23 Year
  Sex: Female

DRUGS (2)
  1. LUMIZYME [Suspect]
     Active Substance: ALGLUCOSIDASE ALFA
     Indication: Glycogen storage disease type II
     Dosage: 1600 MG; QW
     Route: 042
     Dates: start: 20190916
  2. LUMIZYME [Suspect]
     Active Substance: ALGLUCOSIDASE ALFA
     Dosage: 300 MG, QW
     Route: 042

REACTIONS (11)
  - Poor venous access [Unknown]
  - Infusion site extravasation [Unknown]
  - Device issue [Unknown]
  - Incision site pain [Not Recovered/Not Resolved]
  - Incision site complication [Not Recovered/Not Resolved]
  - Hand-foot-and-mouth disease [Unknown]
  - Insomnia [Unknown]
  - Diarrhoea [Unknown]
  - Hyperhidrosis [Unknown]
  - Headache [Unknown]
  - Inappropriate schedule of product administration [Unknown]

NARRATIVE: CASE EVENT DATE: 20220311
